FAERS Safety Report 4704927-2 (Version None)
Quarter: 2005Q2

REPORT INFORMATION
  Report Type: 
  Country: None (occurrence: None)
  Receive Date: 20050630
  Receipt Date: 20050630
  Transmission Date: 20051028
  Serious: Yes (Death)
  Sender: FDA-Public Use
  Company Number: None

PATIENT
  Age: 66 Year
  Sex: Male
  Weight: 89.2 kg

DRUGS (8)
  1. AMIODARONE    200L MG [Suspect]
     Indication: ATRIAL FIBRILLATION
     Dosage: 200 MG   DAILY   ORAL
     Route: 048
     Dates: start: 20050415, end: 20050522
  2. FUROSEMIDE [Concomitant]
  3. CARVEDILOL [Concomitant]
  4. ATORVASTATIN CALCIUM [Concomitant]
  5. RAMIPRIL [Concomitant]
  6. WARFARIN SODIUM [Concomitant]
  7. SPIRONOLACTONE [Concomitant]
  8. HYDROCODONE [Concomitant]

REACTIONS (8)
  - CHILLS [None]
  - DERMATITIS EXFOLIATIVE [None]
  - INFLUENZA LIKE ILLNESS [None]
  - LEUKOPENIA [None]
  - PHARYNGITIS [None]
  - PHARYNGOLARYNGEAL PAIN [None]
  - PYREXIA [None]
  - STEVENS-JOHNSON SYNDROME [None]
